FAERS Safety Report 17555799 (Version 1)
Quarter: 2020Q1

REPORT INFORMATION
  Report Type: Spontaneous
  Country: SE (occurrence: SE)
  Receive Date: 20200318
  Receipt Date: 20200318
  Transmission Date: 20200409
  Serious: Yes (Other)
  Sender: FDA-Public Use
  Company Number: SE-MYLANLABS-2020M1027225

PATIENT

DRUGS (4)
  1. METHOTREXATE. [Suspect]
     Active Substance: METHOTREXATE
     Indication: PRODUCT USED FOR UNKNOWN INDICATION
     Dosage: UNK(FOUR TIMES (DAYS 1, 8, 15 AND 29))
     Route: 037
  2. PREDNISOLONE. [Concomitant]
     Active Substance: PREDNISOLONE
     Dosage: 60 MG/M2 ON DAYS 1-36, THEN TAPERED
  3. VINCRISTINE [Concomitant]
     Active Substance: VINCRISTINE
     Dosage: 2.0 MILLIGRAM/SQ. METER, SIX TIMES
  4. DOXORUBICIN [Concomitant]
     Active Substance: DOXORUBICIN
     Dosage: 40 MILLIGRAM/SQ. METER

REACTIONS (1)
  - Cerebrovascular accident [Unknown]
